FAERS Safety Report 8967386 (Version 1)
Quarter: 2012Q4

REPORT INFORMATION
  Report Type: 
  Country: MX (occurrence: MX)
  Receive Date: 20121217
  Receipt Date: 20121217
  Transmission Date: 20130627
  Serious: Yes (Death)
  Sender: FDA-Public Use
  Company Number: MX-BIOGENIDEC-2012BI060822

PATIENT
  Age: 52 Year
  Sex: Female
  Weight: 98 kg

DRUGS (7)
  1. TYSABRI [Suspect]
     Indication: RELAPSING-REMITTING MULTIPLE SCLEROSIS
     Route: 042
     Dates: start: 20101212, end: 20121108
  2. AVONEX [Concomitant]
     Indication: MULTIPLE SCLEROSIS
  3. FAMPYRA [Concomitant]
     Route: 048
     Dates: start: 201206, end: 201208
  4. FAMPYRA [Concomitant]
     Route: 048
     Dates: start: 201209
  5. EZETIMIBE [Concomitant]
     Indication: BLOOD TRIGLYCERIDES INCREASED
     Route: 048
     Dates: start: 201208, end: 201209
  6. SIMVASTATIN [Concomitant]
     Indication: BLOOD TRIGLYCERIDES INCREASED
     Route: 048
     Dates: start: 201208, end: 201209
  7. POLYVITAMINS [Concomitant]

REACTIONS (1)
  - Acute myocardial infarction [Fatal]
